FAERS Safety Report 12330283 (Version 1)
Quarter: 2016Q2

REPORT INFORMATION
  Report Type: Spontaneous
  Country: GR (occurrence: GR)
  Receive Date: 20160504
  Receipt Date: 20160504
  Transmission Date: 20160815
  Serious: Yes (Hospitalization)
  Sender: FDA-Public Use
  Company Number: GR-BAUSCH-BL-2016-010105

PATIENT
  Age: 19 Year
  Sex: Female

DRUGS (1)
  1. DEXAMETHASONE. [Suspect]
     Active Substance: DEXAMETHASONE
     Indication: THROMBOCYTOPENIA
     Dosage: HIGH DOSE
     Route: 065

REACTIONS (1)
  - Osteonecrosis [Recovered/Resolved]
